FAERS Safety Report 19369728 (Version 3)
Quarter: 2021Q4

REPORT INFORMATION
  Report Type: Report from Study
  Country: ES (occurrence: ES)
  Receive Date: 20210603
  Receipt Date: 20211027
  Transmission Date: 20220304
  Serious: Yes (Other)
  Sender: FDA-Public Use
  Company Number: ES-EXELIXIS-XL18421040902

PATIENT
  Age: 58 Year
  Sex: Male
  Weight: 70.8 kg

DRUGS (18)
  1. CABOZANTINIB [Suspect]
     Active Substance: CABOZANTINIB
     Indication: Renal cell carcinoma
     Dosage: 40 MG, QD
     Route: 048
     Dates: start: 20210310, end: 20210527
  2. IPILIMUMAB [Suspect]
     Active Substance: IPILIMUMAB
     Indication: Renal cell carcinoma
     Dosage: 1 MG/KG, Q3WEEKS, 4 DOSES
     Route: 042
     Dates: start: 20210310
  3. NIVOLUMAB [Suspect]
     Active Substance: NIVOLUMAB
     Indication: Renal cell carcinoma
     Dosage: 3 MG/KG, Q3WEEKS, 4 DOSES
     Route: 042
     Dates: start: 20210310
  4. MICARDIS [Concomitant]
     Active Substance: TELMISARTAN
  5. HEPARIN [Concomitant]
     Active Substance: HEPARIN SODIUM
  6. INSULIN NOS [Concomitant]
     Active Substance: INSULIN NOS
  7. DAPAGLIFLOZIN [Concomitant]
     Active Substance: DAPAGLIFLOZIN
  8. PREDNISONE [Concomitant]
     Active Substance: PREDNISONE
  9. DEXAMETHASONE [Concomitant]
     Active Substance: DEXAMETHASONE
  10. BISOPROLOL [Concomitant]
     Active Substance: BISOPROLOL
  11. VERAPAMIL [Concomitant]
     Active Substance: VERAPAMIL HYDROCHLORIDE
  12. DIGOXIN [Concomitant]
     Active Substance: DIGOXIN
  13. PROPRANOLOL [Concomitant]
     Active Substance: PROPRANOLOL HYDROCHLORIDE
  14. DAPAGLIFLOZIN [Concomitant]
     Active Substance: DAPAGLIFLOZIN
  15. OMEPRAZOLE [Concomitant]
     Active Substance: OMEPRAZOLE
  16. Telmisartan + HCT Genoptim [Concomitant]
  17. UNSPECIFIED INGREDIENT [Concomitant]
     Active Substance: UNSPECIFIED INGREDIENT
  18. HYALURONIC ACID [Concomitant]
     Active Substance: HYALURONIC ACID

REACTIONS (2)
  - Hyperthyroidism [Not Recovered/Not Resolved]
  - Aspartate aminotransferase increased [Recovered/Resolved]

NARRATIVE: CASE EVENT DATE: 20210503
